FAERS Safety Report 15939693 (Version 1)
Quarter: 2019Q1

REPORT INFORMATION
  Report Type: Spontaneous
  Country: JP (occurrence: JP)
  Receive Date: 20190208
  Receipt Date: 20190208
  Transmission Date: 20190417
  Serious: Yes (Other)
  Sender: FDA-Public Use
  Company Number: JP-PFIZER INC-2019046642

PATIENT
  Sex: Male

DRUGS (1)
  1. SELARA [Suspect]
     Active Substance: EPLERENONE
     Dosage: UNK
     Route: 048

REACTIONS (2)
  - Dehydration [Unknown]
  - Renal impairment [Unknown]
